FAERS Safety Report 17880667 (Version 1)
Quarter: 2020Q2

REPORT INFORMATION
  Report Type: Spontaneous
  Country: US (occurrence: US)
  Receive Date: 20200610
  Receipt Date: 20200610
  Transmission Date: 20200714
  Serious: Yes (Other)
  Sender: FDA-Public Use
  Company Number: US-PFIZER INC-2020226211

PATIENT
  Age: 44 Year
  Sex: Female

DRUGS (1)
  1. XELJANZ [Suspect]
     Active Substance: TOFACITINIB CITRATE
     Dosage: UNK

REACTIONS (7)
  - Feeling cold [Unknown]
  - Headache [Unknown]
  - Haematochezia [Unknown]
  - Decreased appetite [Unknown]
  - Hot flush [Unknown]
  - Nausea [Unknown]
  - Product dose omission [Unknown]
